FAERS Safety Report 8099896-4 (Version None)
Quarter: 2012Q1

REPORT INFORMATION
  Report Type: 
  Country: None (occurrence: None)
  Receive Date: 20120131
  Receipt Date: 20120126
  Transmission Date: 20120608
  Serious: Yes (Hospitalization, Other)
  Sender: FDA-Public Use
  Company Number: US-PFIZER INC-2010006429

PATIENT
  Sex: Female

DRUGS (8)
  1. WELLBUTRIN [Concomitant]
     Indication: DEPRESSION
     Dosage: UNK
     Dates: start: 20070728, end: 20070801
  2. FLUOXETINE [Concomitant]
     Indication: DEPRESSION
     Dosage: UNK
     Dates: start: 20021025, end: 20090801
  3. PREMARIN [Concomitant]
     Indication: OESTROGEN REPLACEMENT THERAPY
     Dosage: UNK
     Dates: start: 20010128, end: 20080101
  4. LEVAQUIN [Concomitant]
     Indication: BACTERIAL INFECTION
     Dosage: UNK
     Dates: start: 20050510, end: 20080508
  5. CHANTIX [Suspect]
     Dosage: STARTING PACK AND 1 MG CONTINUING PACK
     Dates: start: 20070728, end: 20071029
  6. ACETAMINOPHEN AND HYDROCODONE BITARTRATE [Concomitant]
     Indication: ANALGESIC THERAPY
     Dosage: UNK
     Dates: start: 20050503, end: 20090301
  7. ALPRAZOLAM [Concomitant]
     Indication: ANXIETY
     Dosage: UNK
     Dates: start: 20070728, end: 20071001
  8. LORAZEPAM [Concomitant]
     Indication: ANXIETY
     Dosage: UNK
     Dates: start: 20030219, end: 20071016

REACTIONS (4)
  - SUICIDE ATTEMPT [None]
  - AGGRESSION [None]
  - INTENTIONAL OVERDOSE [None]
  - DEPRESSION [None]
